FAERS Safety Report 6221904-3 (Version None)
Quarter: 2009Q2

REPORT INFORMATION
  Report Type: 
  Country: None (occurrence: None)
  Receive Date: 20090608
  Receipt Date: 20090608
  Transmission Date: 20091009
  Serious: Yes (Life-Threatening, Hospitalization)
  Sender: FDA-Public Use
  Company Number: None

PATIENT
  Sex: Female
  Weight: 89.8122 kg

DRUGS (2)
  1. FENTANYL-100 [Suspect]
     Indication: ANALGESIA
     Dosage: 50 MCG X'S 1 INTRATHECAL
     Route: 037
     Dates: start: 20090521
  2. DURAMORPH 0.5MG / 10ML BAXTER [Suspect]
     Indication: ANALGESIA
     Dosage: 0.25MG X'S 1 INTRATHECAL
     Route: 037
     Dates: start: 20090521

REACTIONS (1)
  - MENINGITIS STREPTOCOCCAL [None]
